FAERS Safety Report 17061483 (Version 4)
Quarter: 2020Q1

REPORT INFORMATION
  Report Type: Spontaneous
  Country: US (occurrence: US)
  Receive Date: 20191121
  Receipt Date: 20200313
  Transmission Date: 20200409
  Serious: No
  Sender: FDA-Public Use
  Company Number: US-PFIZER INC-2019503668

PATIENT
  Age: 35 Year
  Sex: Female
  Weight: 125 kg

DRUGS (8)
  1. PARAPLATIN [Concomitant]
     Active Substance: CARBOPLATIN
     Indication: CHEMOTHERAPY
     Dosage: UNK
  2. DOCETAXEL ACCORD [Suspect]
     Active Substance: DOCETAXEL
     Indication: BREAST CANCER FEMALE
     Dosage: 188 MG, CYCLIC (06 CYCLES, EVERY THREE WEEKS)
     Dates: start: 20150330, end: 20150828
  3. TAXOTERE [Concomitant]
     Active Substance: DOCETAXEL
     Indication: CHEMOTHERAPY
     Dosage: UNK
  4. ALEVE [Concomitant]
     Active Substance: NAPROXEN SODIUM
     Dosage: UNK
     Dates: start: 201501
  5. VENLAFAXINE [Concomitant]
     Active Substance: VENLAFAXINE HYDROCHLORIDE
     Dosage: UNK
     Dates: start: 20130115
  6. DOCETAXEL. [Suspect]
     Active Substance: DOCETAXEL
     Indication: BREAST CANCER FEMALE
     Dosage: 188 MG, CYCLIC (06 CYCLES, EVERY THREE WEEKS)
     Dates: start: 20150330, end: 20150828
  7. ZOFRAN [Concomitant]
     Active Substance: ONDANSETRON HYDROCHLORIDE
     Dosage: UNK
     Dates: start: 20150301, end: 20150901
  8. HERCEPTIN [Concomitant]
     Active Substance: TRASTUZUMAB
     Indication: CHEMOTHERAPY
     Dosage: UNK

REACTIONS (5)
  - Hair disorder [Recovered/Resolved]
  - Hair colour changes [Recovered/Resolved]
  - Hair texture abnormal [Recovered/Resolved]
  - Alopecia [Recovered/Resolved]
  - Madarosis [Recovered/Resolved]

NARRATIVE: CASE EVENT DATE: 201602
